FAERS Safety Report 5064737-6 (Version None)
Quarter: 2006Q3

REPORT INFORMATION
  Report Type: 
  Country: None (occurrence: None)
  Receive Date: 20060728
  Receipt Date: 20060718
  Transmission Date: 20061208
  Serious: Yes (Death, Hospitalization)
  Sender: FDA-Public Use
  Company Number: RU-SANOFI-SYNTHELABO-F01200601673

PATIENT
  Sex: Male

DRUGS (3)
  1. LEUCOVORIN CALCIUM [Suspect]
     Dosage: 616 MG 2 X PER 2 WEEK
     Route: 042
  2. FLUOROURACIL [Suspect]
     Dosage: 3080 MG 2 X PER 2 WEEK
     Route: 042
  3. OXALIPLATIN [Suspect]
     Indication: COLON CANCER
     Route: 042

REACTIONS (3)
  - DIARRHOEA [None]
  - HYPERGLYCAEMIA [None]
  - MYOCARDIAL ISCHAEMIA [None]
